FAERS Safety Report 7090985-X (Version None)
Quarter: 2010Q4

REPORT INFORMATION
  Report Type: 
  Country: None (occurrence: None)
  Receive Date: 20101109
  Receipt Date: 20101103
  Transmission Date: 20110411
  Serious: Yes (Other)
  Sender: FDA-Public Use
  Company Number: US-TYCO HEALTHCARE/MALLINCKRODT-T201002209

PATIENT

DRUGS (1)
  1. OPTIMARK [Suspect]
     Indication: NUCLEAR MAGNETIC RESONANCE IMAGING
     Dosage: UNK
     Route: 042
     Dates: start: 20070117, end: 20070117

REACTIONS (1)
  - CARDIAC ARREST [None]
